FAERS Safety Report 8153971 (Version 3)
Quarter: 2013Q4

REPORT INFORMATION
  Report Type: Spontaneous
  Country: US (occurrence: US)
  Receive Date: 20110923
  Receipt Date: 20131025
  Transmission Date: 20140711
  Serious: Yes (Life-Threatening, Hospitalization)
  Sender: FDA-Public Use
  Company Number: US-JNJFOC-20110908827

PATIENT
  Age: 8 Month
  Sex: Male

DRUGS (1)
  1. TRAMADOL HYDROCHLORIDE [Suspect]
     Indication: ACCIDENTAL EXPOSURE TO PRODUCT
     Dosage: 1-3 TABLETS OF 200 MG, EXTENDED RELEASE
     Route: 048

REACTIONS (7)
  - Sedation [Recovered/Resolved]
  - Apnoeic attack [Recovered/Resolved]
  - Grand mal convulsion [Recovered/Resolved]
  - Accidental exposure to product [Recovered/Resolved]
  - Agitation [Recovered/Resolved]
  - Heart rate increased [Recovered/Resolved]
  - Respiratory depression [Recovered/Resolved]
